FAERS Safety Report 8708601 (Version 2)
Quarter: 2012Q4

REPORT INFORMATION
  Report Type: 
  Country: US (occurrence: US)
  Receive Date: 20120806
  Receipt Date: 20120905
  Transmission Date: 20130627
  Serious: No
  Sender: FDA-Public Use
  Company Number: US-009507513-1207USA007879

PATIENT

DRUGS (4)
  1. VICTRELIS [Suspect]
     Indication: HEPATITIS C
     Dosage: 800 mg, tid
     Route: 048
     Dates: start: 20120628
  2. REBETOL [Suspect]
     Dosage: 200 mg, UNK
  3. PEG-INTRON [Suspect]
     Dosage: 80 Microgram, UNK
  4. PROTONIX [Suspect]
     Dosage: 20 mg, UNK

REACTIONS (6)
  - Weight decreased [Unknown]
  - Dysgeusia [Unknown]
  - Haemoglobin decreased [Unknown]
  - Nausea [Unknown]
  - Asthenia [Unknown]
  - Chills [Unknown]
